FAERS Safety Report 8161313-3 (Version None)
Quarter: 2012Q1

REPORT INFORMATION
  Report Type: 
  Country: None (occurrence: None)
  Receive Date: 20120224
  Receipt Date: 20120216
  Transmission Date: 20120608
  Serious: Yes (Other)
  Sender: FDA-Public Use
  Company Number: US-JNJFOC-20111007668

PATIENT
  Sex: Female
  Weight: 66.1 kg

DRUGS (13)
  1. GOLIMUMAB [Suspect]
     Indication: RHEUMATOID ARTHRITIS
     Route: 058
     Dates: start: 20110505
  2. ASPIRIN [Concomitant]
     Route: 048
     Dates: start: 20100812
  3. GOLIMUMAB [Suspect]
     Route: 058
     Dates: start: 20060707
  4. PRILOSEC [Concomitant]
     Route: 048
     Dates: start: 20080612
  5. FOLIC ACID [Concomitant]
     Route: 048
     Dates: start: 20000406
  6. GOLIMUMAB [Suspect]
     Route: 058
     Dates: end: 20110701
  7. MECLIZINE [Concomitant]
     Route: 048
     Dates: start: 20050101
  8. ULTRAM [Concomitant]
     Route: 048
     Dates: start: 20000503
  9. LOZOL [Concomitant]
     Route: 048
     Dates: start: 20050101
  10. MULTIVITAMINS WITH IRON [Concomitant]
     Route: 048
     Dates: start: 20070213
  11. LOTREL [Concomitant]
     Route: 048
     Dates: start: 20030828
  12. TRIAMTERENE AND HYDROCHLOROTHIAZIDE [Concomitant]
     Route: 048
     Dates: start: 20050101
  13. CELEBREX [Concomitant]
     Route: 048
     Dates: start: 20091022

REACTIONS (2)
  - DYSPNOEA [None]
  - HISTOPLASMOSIS [None]
